FAERS Safety Report 19442912 (Version 1)
Quarter: 2021Q2

REPORT INFORMATION
  Report Type: Spontaneous
  Country: JP (occurrence: JP)
  Receive Date: 20210621
  Receipt Date: 20210621
  Transmission Date: 20210717
  Serious: Yes (Hospitalization, Other)
  Sender: FDA-Public Use
  Company Number: JP-LUPIN PHARMACEUTICALS INC.-2021-09681

PATIENT
  Age: 44 Year
  Sex: Male

DRUGS (1)
  1. TRIAMCINOLONE [Suspect]
     Active Substance: TRIAMCINOLONE
     Indication: DERMATITIS CONTACT
     Dosage: UNK? INJECTION
     Route: 030

REACTIONS (5)
  - Rib fracture [Recovered/Resolved]
  - Respiratory distress [Recovered/Resolved]
  - Empyema [Recovering/Resolving]
  - Pleural effusion [Recovering/Resolving]
  - Staphylococcal infection [Recovering/Resolving]
